FAERS Safety Report 24883709 (Version 2)
Quarter: 2025Q1

REPORT INFORMATION
  Report Type: Spontaneous
  Country: PT (occurrence: PT)
  Receive Date: 20250124
  Receipt Date: 20250130
  Transmission Date: 20250409
  Serious: Yes (Disabling, Other)
  Sender: OTSUKA
  Company Number: None

PATIENT
  Age: 31 Year
  Sex: Male
  Weight: 100 kg

DRUGS (4)
  1. ABILIFY MAINTENA [Suspect]
     Active Substance: ARIPIPRAZOLE
     Indication: Mental disorder
     Route: 030
     Dates: start: 20241125
  2. SERTRALINE HYDROCHLORIDE [Concomitant]
     Active Substance: SERTRALINE HYDROCHLORIDE
     Indication: Product used for unknown indication
     Route: 065
  3. SERTRALINE HYDROCHLORIDE [Concomitant]
     Active Substance: SERTRALINE HYDROCHLORIDE
     Route: 065
  4. MEXAZOLAM [Concomitant]
     Active Substance: MEXAZOLAM
     Indication: Anxiety
     Route: 065

REACTIONS (5)
  - Ephelides [Not Recovered/Not Resolved]
  - Cardiac disorder [Not Recovered/Not Resolved]
  - Exercise tolerance decreased [Not Recovered/Not Resolved]
  - Salivary hypersecretion [Not Recovered/Not Resolved]
  - Weight increased [Not Recovered/Not Resolved]

NARRATIVE: CASE EVENT DATE: 20241125
